FAERS Safety Report 4588765-X (Version None)
Quarter: 2005Q1

REPORT INFORMATION
  Report Type: 
  Country: None (occurrence: None)
  Receive Date: 20050222
  Receipt Date: 20041008
  Transmission Date: 20050727
  Serious: No
  Sender: FDA-Public Use
  Company Number: 110347

PATIENT

DRUGS (1)
  1. ALKERAN [Suspect]
     Indication: TRANSPLANT
     Route: 050

REACTIONS (2)
  - PROPHYLAXIS [None]
  - RASH [None]
